FAERS Safety Report 20144998 (Version 1)
Quarter: 2021Q4

REPORT INFORMATION
  Report Type: Spontaneous
  Country: US (occurrence: US)
  Receive Date: 20211203
  Receipt Date: 20211203
  Transmission Date: 20220303
  Serious: Yes (Disabling, Other)
  Sender: FDA-Public Use
  Company Number: US-TEVA-2021-US-1983357

PATIENT
  Age: 50 Year
  Sex: Female
  Weight: 68.04 kg

DRUGS (21)
  1. DOCETAXEL [Suspect]
     Active Substance: DOCETAXEL
     Indication: Triple positive breast cancer
     Dosage: 75 MG/M2, 6 CYCLES, EVERY 3 WEEKS
     Route: 042
     Dates: start: 20141219, end: 20150407
  2. CARBOPLATIN [Suspect]
     Active Substance: CARBOPLATIN
     Indication: Triple positive breast cancer
     Dosage: AUC 5= 709 MG, 6 CYCLES, EVERY 3 WEEKS
     Route: 042
     Dates: start: 20141219, end: 20150407
  3. HERCEPTIN [Suspect]
     Active Substance: TRASTUZUMAB
     Indication: Triple positive breast cancer
     Route: 042
  4. TRAMADOL HCL [Concomitant]
     Active Substance: TRAMADOL HYDROCHLORIDE
     Dosage: EXTENDED RELEASE 24 HOUR 2 TABLETS AT BEDTIME
  5. DULOXETINE [Concomitant]
     Active Substance: DULOXETINE
     Route: 048
     Dates: start: 20140522, end: 20140926
  6. DEXILANT [Concomitant]
     Active Substance: DEXLANSOPRAZOLE
     Indication: Gastrooesophageal reflux disease
     Dosage: DELAYED RELEASE
     Route: 048
     Dates: start: 20121218
  7. TRAMADOL [Concomitant]
     Active Substance: TRAMADOL
     Route: 048
     Dates: start: 20130118, end: 20141216
  8. DEXAMETHASONE [Concomitant]
     Active Substance: DEXAMETHASONE
     Dosage: TAKE 1 TAB TWICE A DAY THE DAY BEFORE CHEMO, THE DAY OF CHEMO, AND THE DAY AFTER CHEMO
     Route: 048
  9. NEULASTA [Concomitant]
     Active Substance: PEGFILGRASTIM
  10. AMLODIPINE BESYLATE [Concomitant]
     Active Substance: AMLODIPINE BESYLATE
  11. PAROXETINE HYDROCHLORIDE [Concomitant]
     Active Substance: PAROXETINE HYDROCHLORIDE
     Indication: Depression
  12. CEPHALEXIN [Concomitant]
     Active Substance: CEPHALEXIN
     Dates: end: 20141103
  13. PERCOCET [Concomitant]
     Active Substance: ACETAMINOPHEN\OXYCODONE HYDROCHLORIDE
     Dosage: 5-325 MG
  14. AMBIEN [Concomitant]
     Active Substance: ZOLPIDEM TARTRATE
     Indication: Insomnia
     Dosage: AT BEDTIME
     Route: 048
  15. LIPITOR [Concomitant]
     Active Substance: ATORVASTATIN CALCIUM
     Indication: Hyperlipidaemia
     Dosage: QHS
     Route: 048
  16. WELLBUTRIN [Concomitant]
     Active Substance: BUPROPION HYDROCHLORIDE
     Indication: Depression
     Dosage: EXTENDED RELEASE
     Route: 048
  17. PROTONIX [Concomitant]
     Active Substance: PANTOPRAZOLE SODIUM
     Indication: Gastrooesophageal reflux disease
     Route: 048
  18. KEFLEX [Concomitant]
     Active Substance: CEPHALEXIN
     Route: 048
  19. EMEND [Concomitant]
     Active Substance: APREPITANT
     Indication: Premedication
     Route: 042
  20. DECADRON [Concomitant]
     Active Substance: DEXAMETHASONE
     Indication: Premedication
     Route: 042
  21. KYTRIL [Concomitant]
     Active Substance: GRANISETRON HYDROCHLORIDE
     Indication: Premedication
     Route: 042

REACTIONS (24)
  - Alopecia areata [Not Recovered/Not Resolved]
  - Hypokalaemia [Unknown]
  - Pyelonephritis [Unknown]
  - Hair texture abnormal [Not Recovered/Not Resolved]
  - Hair colour changes [Not Recovered/Not Resolved]
  - Stomatitis [Unknown]
  - Nausea [Unknown]
  - Diarrhoea [Unknown]
  - Fatigue [Unknown]
  - Urinary tract infection [Unknown]
  - Klebsiella infection [Unknown]
  - Abdominal pain [Unknown]
  - Faeces discoloured [Unknown]
  - Upper respiratory tract infection [Unknown]
  - Chest pain [Recovered/Resolved]
  - Chest discomfort [Unknown]
  - Haemoglobin decreased [Unknown]
  - Muscle spasms [Unknown]
  - Weight decreased [Unknown]
  - Neutrophilia [Unknown]
  - Back pain [Unknown]
  - Chromaturia [Unknown]
  - Lymphoedema [Unknown]
  - Cystitis [Unknown]

NARRATIVE: CASE EVENT DATE: 20150101
